FAERS Safety Report 6974917 (Version 9)
Quarter: 2013Q3

REPORT INFORMATION
  Report Type: Spontaneous
  Country: US (occurrence: US)
  Receive Date: 20090422
  Receipt Date: 20130802
  Transmission Date: 20140515
  Serious: Yes (Hospitalization, Other)
  Sender: FDA-Public Use
  Company Number: US-ROCHE-610568

PATIENT
  Age: 32 Year
  Sex: Male
  Weight: 86.2 kg

DRUGS (3)
  1. ACCUTANE [Suspect]
     Indication: ACNE
     Route: 065
     Dates: start: 19921010, end: 19930104
  2. ACCUTANE [Suspect]
     Route: 065
     Dates: start: 19930123, end: 19930215
  3. HUMIRA [Concomitant]
     Indication: CROHN^S DISEASE

REACTIONS (8)
  - Crohn^s disease [Unknown]
  - Small intestinal obstruction [Unknown]
  - Inflammatory bowel disease [Unknown]
  - Optic neuritis [Unknown]
  - Depression [Not Recovered/Not Resolved]
  - Anxiety [Not Recovered/Not Resolved]
  - Large intestine polyp [Unknown]
  - Arthritis [Unknown]
